FAERS Safety Report 9258271 (Version 1)
Quarter: 2013Q1

REPORT INFORMATION
  Report Type: Spontaneous
  Country: US (occurrence: None)
  Receive Date: 20121212
  Receipt Date: 20121212
  Transmission Date: 20140127
  Serious: No
  Sender: FDA-Public Use
  Company Number: 1210USA010281

PATIENT
  Age: 57 Year
  Sex: Male
  Weight: 112.5 kg

DRUGS (3)
  1. VICTRELIS [Suspect]
  2. PEGINTERFERON ALFA-2B [Suspect]
  3. RIBASPHERE [Suspect]

REACTIONS (6)
  - Weight increased [None]
  - Fluid retention [None]
  - Eye swelling [None]
  - Swelling face [None]
  - Rash [None]
  - Leukopenia [None]
